FAERS Safety Report 10515666 (Version 2)
Quarter: 2014Q4

REPORT INFORMATION
  Report Type: Spontaneous
  Country: FR (occurrence: FR)
  Receive Date: 20141014
  Receipt Date: 20141105
  Transmission Date: 20150528
  Serious: Yes (Other)
  Sender: FDA-Public Use
  Company Number: FR-JNJFOC-20141007215

PATIENT
  Age: 81 Year
  Sex: Female

DRUGS (1)
  1. IXPRIM [Suspect]
     Active Substance: ACETAMINOPHEN\TRAMADOL HYDROCHLORIDE
     Indication: BACK PAIN
     Route: 048
     Dates: start: 20140115, end: 20140116

REACTIONS (7)
  - Dizziness [Recovered/Resolved]
  - Somnolence [Unknown]
  - Visual acuity reduced [Not Recovered/Not Resolved]
  - Myoclonus [Recovered/Resolved]
  - Facial spasm [Recovered/Resolved]
  - Balance disorder [Unknown]
  - Vomiting [Unknown]

NARRATIVE: CASE EVENT DATE: 20140116
